FAERS Safety Report 7927953-9 (Version None)
Quarter: 2011Q4

REPORT INFORMATION
  Report Type: 
  Country: None (occurrence: None)
  Receive Date: 20111118
  Receipt Date: 20111110
  Transmission Date: 20120403
  Serious: Yes (Death, Hospitalization, Other)
  Sender: FDA-Public Use
  Company Number: FR-PFIZER INC-2011278865

PATIENT
  Sex: Female

DRUGS (1)
  1. ZYVOX [Suspect]
     Indication: STAPHYLOCOCCAL MEDIASTINITIS

REACTIONS (4)
  - THROMBOCYTOPENIA [None]
  - LACTIC ACIDOSIS [None]
  - REFRACTORY ANAEMIA [None]
  - RENAL FAILURE [None]
